FAERS Safety Report 7649550-5 (Version None)
Quarter: 2011Q3

REPORT INFORMATION
  Report Type: 
  Country: None (occurrence: None)
  Receive Date: 20110802
  Receipt Date: 20110718
  Transmission Date: 20111222
  Serious: Yes (Other)
  Sender: FDA-Public Use
  Company Number: ES-RANBAXY-2010R1-40749

PATIENT
  Age: 27 Year
  Sex: Male

DRUGS (1)
  1. ZOLPIDEM [Suspect]
     Indication: PRODUCT USED FOR UNKNOWN INDICATION
     Dosage: 10 MG, AT BEDTIME
     Route: 065

REACTIONS (4)
  - WEIGHT INCREASED [None]
  - DRUG INEFFECTIVE [None]
  - ABNORMAL SLEEP-RELATED EVENT [None]
  - CONDITION AGGRAVATED [None]
